FAERS Safety Report 9853654 (Version 2)
Quarter: 2014Q1

REPORT INFORMATION
  Report Type: Spontaneous
  Country: DE (occurrence: DE)
  Receive Date: 20140129
  Receipt Date: 20140203
  Transmission Date: 20141002
  Serious: Yes (Other)
  Sender: FDA-Public Use
  Company Number: DE-PFIZER INC-2014020665

PATIENT
  Sex: 0

DRUGS (6)
  1. AREDIA [Suspect]
     Indication: PLASMA CELL MYELOMA
     Dosage: UNK
     Dates: start: 2001, end: 2002
  2. AREDIA [Suspect]
     Dosage: UNK
     Dates: start: 2003, end: 2010
  3. ZOMETA [Suspect]
     Dosage: UNK
     Dates: start: 2002, end: 2003
  4. ZOMETA [Suspect]
     Dosage: UNK
     Dates: start: 2010
  5. CYCLOPHOSPHAMIDE [Concomitant]
     Indication: PLASMA CELL MYELOMA
     Dosage: UNK
  6. INTERFERON ALFA [Concomitant]

REACTIONS (1)
  - Osteonecrosis [Recovered/Resolved]
